FAERS Safety Report 6299932-1 (Version None)
Quarter: 2009Q3

REPORT INFORMATION
  Report Type: 
  Country: None (occurrence: None)
  Receive Date: 20090806
  Receipt Date: 20090728
  Transmission Date: 20100115
  Serious: Yes (Hospitalization, Other)
  Sender: FDA-Public Use
  Company Number: US-ABBOTT-09P-163-0585336-00

PATIENT
  Sex: Male
  Weight: 81.72 kg

DRUGS (7)
  1. HUMIRA [Suspect]
     Indication: CROHN'S DISEASE
     Route: 058
     Dates: start: 20080801
  2. DEPAKOTE INTRAVENOUS [Suspect]
     Indication: CONVULSION
     Route: 042
     Dates: start: 20080901, end: 20080901
  3. DEPAKOTE [Suspect]
     Indication: CONVULSION
     Route: 048
     Dates: start: 20080901, end: 20080901
  4. PERCOCET [Concomitant]
     Indication: BACK PAIN
     Dosage: 10/325MG 4 TABS DAILY OR EVERY 6HRS
     Route: 048
  5. LIALDA [Concomitant]
     Indication: DRUG USE FOR UNKNOWN INDICATION
     Route: 048
  6. UNKNOWN STEROIDS [Concomitant]
     Indication: ARTHROPATHY
  7. SOMA [Concomitant]
     Indication: BACK DISORDER

REACTIONS (4)
  - CONVULSION [None]
  - DIZZINESS [None]
  - DRUG DOSE OMISSION [None]
  - RASH [None]
